FAERS Safety Report 25865913 (Version 1)
Quarter: 2025Q3

REPORT INFORMATION
  Report Type: Report from Study
  Country: CA (occurrence: CA)
  Receive Date: 20250930
  Receipt Date: 20250930
  Transmission Date: 20251020
  Serious: Yes (Hospitalization)
  Sender: ABBVIE
  Company Number: CA-ABBVIE-6478442

PATIENT
  Age: 26 Year
  Sex: Male

DRUGS (1)
  1. RINVOQ [Suspect]
     Active Substance: UPADACITINIB
     Indication: Colitis ulcerative
     Route: 048

REACTIONS (5)
  - Bowel movement irregularity [Recovering/Resolving]
  - Diarrhoea haemorrhagic [Unknown]
  - Abdominal pain [Unknown]
  - Acne [Unknown]
  - Constipation [Unknown]

NARRATIVE: CASE EVENT DATE: 20250201
